FAERS Safety Report 5128857-X (Version None)
Quarter: 2006Q4

REPORT INFORMATION
  Report Type: 
  Country: None (occurrence: None)
  Receive Date: 20061017
  Receipt Date: 20050823
  Transmission Date: 20070319
  Serious: No
  Sender: FDA-Public Use
  Company Number: US-GLAXOSMITHKLINE-A0571491A

PATIENT
  Sex: Male

DRUGS (1)
  1. CEFTIN [Suspect]
     Indication: LYME DISEASE
     Route: 048

REACTIONS (1)
  - RASH [None]
